FAERS Safety Report 4322038-5 (Version None)
Quarter: 2004Q1

REPORT INFORMATION
  Report Type: 
  Country: None (occurrence: None)
  Receive Date: 20040319
  Receipt Date: 20040308
  Transmission Date: 20041129
  Serious: Yes (Hospitalization)
  Sender: FDA-Public Use
  Company Number: 2004US000139

PATIENT
  Age: 52 Year
  Sex: Female
  Weight: 60.8 kg

DRUGS (4)
  1. ADENOSCAN [Suspect]
     Indication: SCAN MYOCARDIAL PERFUSION
     Dosage: 140.00 RK/MIN; INTRAVENOUS
     Route: 042
     Dates: start: 20040204
  2. ACTOS /USA/(PIOGLITAZONE HYDROCHLORIDE) [Concomitant]
  3. GLUCOPHAGE XL [Concomitant]
  4. ZOCOR [Concomitant]

REACTIONS (4)
  - AURA [None]
  - CONVULSION [None]
  - MEMORY IMPAIRMENT [None]
  - SPEECH DISORDER [None]
